FAERS Safety Report 14587710 (Version 5)
Quarter: 2020Q1

REPORT INFORMATION
  Report Type: Spontaneous
  Country: US (occurrence: US)
  Receive Date: 20180301
  Receipt Date: 20200205
  Transmission Date: 20200409
  Serious: Yes (Hospitalization, Other)
  Sender: FDA-Public Use
  Company Number: US-ASTRAZENECA-2018SE25432

PATIENT
  Age: 27313 Day
  Sex: Female
  Weight: 68 kg

DRUGS (70)
  1. NEXIUM [Suspect]
     Active Substance: ESOMEPRAZOLE MAGNESIUM
     Indication: GASTROOESOPHAGEAL REFLUX DISEASE
     Route: 048
     Dates: start: 20080130, end: 20170821
  2. NEXIUM [Suspect]
     Active Substance: ESOMEPRAZOLE MAGNESIUM
     Indication: GASTROOESOPHAGEAL REFLUX DISEASE
     Route: 048
     Dates: start: 20140131, end: 20160311
  3. PANTOPRAZOLE [Suspect]
     Active Substance: PANTOPRAZOLE
     Indication: GASTROOESOPHAGEAL REFLUX DISEASE
     Dosage: GENERIC
     Route: 065
     Dates: start: 2017
  4. COREG CR [Concomitant]
     Active Substance: CARVEDILOL PHOSPHATE
     Route: 048
  5. MAXZIDE [Concomitant]
     Active Substance: HYDROCHLOROTHIAZIDE\TRIAMTERENE
  6. MINOXIDIL. [Concomitant]
     Active Substance: MINOXIDIL
  7. FLUTICASONE. [Concomitant]
     Active Substance: FLUTICASONE
  8. METFORMIN [Concomitant]
     Active Substance: METFORMIN HYDROCHLORIDE
  9. NASONEX [Concomitant]
     Active Substance: MOMETASONE FUROATE
  10. FERROUS SULFATE. [Concomitant]
     Active Substance: FERROUS SULFATE
  11. SUDOGEST [Concomitant]
     Active Substance: PSEUDOEPHEDRINE HYDROCHLORIDE
  12. VITAMIN D2 [Concomitant]
     Active Substance: ERGOCALCIFEROL
  13. NEXIUM [Suspect]
     Active Substance: ESOMEPRAZOLE MAGNESIUM
     Indication: GASTROOESOPHAGEAL REFLUX DISEASE
     Route: 048
     Dates: start: 2011, end: 2013
  14. PANTOPRAZOLE [Suspect]
     Active Substance: PANTOPRAZOLE
     Indication: GASTROOESOPHAGEAL REFLUX DISEASE
     Dosage: DELAYED RELEASE
     Route: 065
     Dates: start: 20170118
  15. LOSARTAN. [Concomitant]
     Active Substance: LOSARTAN
  16. DIAZEPAM. [Concomitant]
     Active Substance: DIAZEPAM
  17. LEXAPRO [Concomitant]
     Active Substance: ESCITALOPRAM OXALATE
  18. NEXIUM [Suspect]
     Active Substance: ESOMEPRAZOLE MAGNESIUM
     Indication: GASTROOESOPHAGEAL REFLUX DISEASE
     Route: 048
     Dates: start: 20080130, end: 20130301
  19. CLONAZOPAM [Concomitant]
     Active Substance: CLONAZEPAM
     Dates: start: 2018
  20. METOPROLOL SUCCINATE. [Concomitant]
     Active Substance: METOPROLOL SUCCINATE
     Route: 048
  21. RENVELA [Concomitant]
     Active Substance: SEVELAMER CARBONATE
  22. ZOLOFT [Concomitant]
     Active Substance: SERTRALINE HYDROCHLORIDE
  23. TYLENOL [Concomitant]
     Active Substance: ACETAMINOPHEN
  24. DULOXETINE. [Concomitant]
     Active Substance: DULOXETINE
  25. LABETALOL [Concomitant]
     Active Substance: LABETALOL\LABETALOL HYDROCHLORIDE
  26. NITROGLYCERIN. [Concomitant]
     Active Substance: NITROGLYCERIN
  27. FOLIC ACID. [Concomitant]
     Active Substance: FOLIC ACID
  28. LISINOPRIL. [Concomitant]
     Active Substance: LISINOPRIL
  29. HYDROMORPHONE [Concomitant]
     Active Substance: HYDROMORPHONE
  30. FENTANYL. [Concomitant]
     Active Substance: FENTANYL
  31. TRAZODONE [Concomitant]
     Active Substance: TRAZODONE HYDROCHLORIDE
  32. MUCINEX [Concomitant]
     Active Substance: GUAIFENESIN
  33. NEXIUM [Suspect]
     Active Substance: ESOMEPRAZOLE MAGNESIUM
     Indication: GASTROOESOPHAGEAL REFLUX DISEASE
     Route: 048
     Dates: start: 2016, end: 2017
  34. NEXIUM 24HR [Suspect]
     Active Substance: ESOMEPRAZOLE MAGNESIUM
     Route: 048
  35. CARDURA [Concomitant]
     Active Substance: DOXAZOSIN MESYLATE
     Route: 048
     Dates: start: 20110916
  36. CRESTOR [Concomitant]
     Active Substance: ROSUVASTATIN CALCIUM
  37. FERROUS SULFATE. [Concomitant]
     Active Substance: FERROUS SULFATE
  38. PERCOCET [Concomitant]
     Active Substance: ACETAMINOPHEN\OXYCODONE HYDROCHLORIDE
     Dosage: AS NEEDED
  39. VITAMIN B12 [Concomitant]
     Active Substance: CYANOCOBALAMIN
     Dosage: 1/2 TABLET DALIY
  40. CLONIDINE. [Concomitant]
     Active Substance: CLONIDINE
  41. FAMOTIDINE. [Concomitant]
     Active Substance: FAMOTIDINE
     Dosage: (PRESCRIPTION)
     Dates: start: 20140310
  42. LOVAZA [Concomitant]
     Active Substance: OMEGA-3-ACID ETHYL ESTERS
  43. BENZONATATE. [Concomitant]
     Active Substance: BENZONATATE
  44. NEXIUM [Suspect]
     Active Substance: ESOMEPRAZOLE MAGNESIUM
     Indication: GASTROOESOPHAGEAL REFLUX DISEASE
     Dosage: GENERIC
     Route: 065
  45. AMLODIPINE [Concomitant]
     Active Substance: AMLODIPINE BESYLATE
     Indication: BLOOD PRESSURE MEASUREMENT
     Dates: start: 2018
  46. CLOPIDOGREL [Concomitant]
     Active Substance: CLOPIDOGREL BISULFATE
  47. HYDRALAZINE [Concomitant]
     Active Substance: HYDRALAZINE HYDROCHLORIDE
  48. MORPHINE [Concomitant]
     Active Substance: MORPHINE
  49. KEFLEX [Concomitant]
     Active Substance: CEPHALEXIN
  50. AMITRIPTYLINE [Concomitant]
     Active Substance: AMITRIPTYLINE
  51. HUMALOG [Concomitant]
     Active Substance: INSULIN LISPRO
     Dates: start: 2018
  52. OPANA [Concomitant]
     Active Substance: OXYMORPHONE HYDROCHLORIDE
  53. ATORVASTATIN [Concomitant]
     Active Substance: ATORVASTATIN
  54. PRAVASTATIN SODIUM. [Concomitant]
     Active Substance: PRAVASTATIN SODIUM
  55. FEXOFENADINE HCL [Concomitant]
     Active Substance: FEXOFENADINE HYDROCHLORIDE
  56. NEXIUM [Suspect]
     Active Substance: ESOMEPRAZOLE MAGNESIUM
     Indication: GASTROOESOPHAGEAL REFLUX DISEASE
     Route: 048
     Dates: start: 20080130
  57. LANTUS [Concomitant]
     Active Substance: INSULIN GLARGINE
  58. CLARITIN [Concomitant]
     Active Substance: LORATADINE
  59. XYZAL [Concomitant]
     Active Substance: LEVOCETIRIZINE DIHYDROCHLORIDE
  60. NEXIUM [Suspect]
     Active Substance: ESOMEPRAZOLE MAGNESIUM
     Indication: GASTROOESOPHAGEAL REFLUX DISEASE
     Route: 048
     Dates: start: 20130723, end: 20140206
  61. PANTOPRAZOLE [Suspect]
     Active Substance: PANTOPRAZOLE
     Indication: GASTROOESOPHAGEAL REFLUX DISEASE
     Dosage: GENERIC
     Route: 065
     Dates: start: 20170118, end: 20170821
  62. GABAPENTIN. [Concomitant]
     Active Substance: GABAPENTIN
  63. VITAMIN B6 [Concomitant]
     Active Substance: PYRIDOXINE HYDROCHLORIDE
     Dosage: 1 TAB DAILY
  64. PHENERGAN [Concomitant]
     Active Substance: PROMETHAZINE HYDROCHLORIDE
  65. ZOFRAN [Concomitant]
     Active Substance: ONDANSETRON HYDROCHLORIDE
  66. LORAZEPAM. [Concomitant]
     Active Substance: LORAZEPAM
  67. PROAIR HFA [Concomitant]
     Active Substance: ALBUTEROL SULFATE
  68. TRIAMTERENE-HCTZ [Concomitant]
     Active Substance: HYDROCHLOROTHIAZIDE\TRIAMTERENE
  69. EXFORGE [Concomitant]
     Active Substance: AMLODIPINE BESYLATE\VALSARTAN
  70. SPIRONOLACTONE. [Concomitant]
     Active Substance: SPIRONOLACTONE

REACTIONS (5)
  - Nephrogenic anaemia [Unknown]
  - Renal failure [Not Recovered/Not Resolved]
  - End stage renal disease [Unknown]
  - Chronic kidney disease [Not Recovered/Not Resolved]
  - Acute kidney injury [Not Recovered/Not Resolved]

NARRATIVE: CASE EVENT DATE: 20160308
